FAERS Safety Report 18519454 (Version 3)
Quarter: 2022Q3

REPORT INFORMATION
  Report Type: Report from Study
  Country: CO (occurrence: CO)
  Receive Date: 20201118
  Receipt Date: 20220920
  Transmission Date: 20221026
  Serious: Yes (Death, Other)
  Sender: FDA-Public Use
  Company Number: CO-002147023-PHHY2017CO145536

PATIENT

DRUGS (7)
  1. RUXOLITINIB [Suspect]
     Active Substance: RUXOLITINIB
     Indication: Myelofibrosis
     Dosage: 10 MG, TID (2 TABLETS OF 10MG IN THE MORNING AND 1 TABLET AT NIGHT)
     Route: 048
     Dates: start: 20170804
  2. RUXOLITINIB [Suspect]
     Active Substance: RUXOLITINIB
     Dosage: 15 MG, Q12H (2 YEARS AGO)
     Route: 048
  3. RUXOLITINIB [Suspect]
     Active Substance: RUXOLITINIB
     Dosage: 20 MG, Q12H
     Route: 048
  4. RUXOLITINIB [Suspect]
     Active Substance: RUXOLITINIB
     Dosage: 15 MG, Q12H
     Route: 048
  5. RUXOLITINIB [Suspect]
     Active Substance: RUXOLITINIB
     Dosage: UNK
     Route: 048
  6. ERYTHROPOIETIN [Concomitant]
     Active Substance: ERYTHROPOIETIN
     Indication: Product used for unknown indication
     Dosage: UNK
     Route: 065
  7. FOLIC ACID [Concomitant]
     Active Substance: FOLIC ACID
     Indication: Product used for unknown indication
     Dosage: UNK
     Route: 065

REACTIONS (11)
  - Contusion [Unknown]
  - Oral contusion [Unknown]
  - Death [Fatal]
  - Peripheral swelling [Unknown]
  - Haematoma [Unknown]
  - Platelet count increased [Unknown]
  - Inappropriate schedule of product administration [Unknown]
  - Deafness [Unknown]
  - Product availability issue [Not Recovered/Not Resolved]
  - Gastritis [Unknown]
  - Fatigue [Unknown]

NARRATIVE: CASE EVENT DATE: 20170804
